FAERS Safety Report 18150197 (Version 7)
Quarter: 2020Q4

REPORT INFORMATION
  Report Type: Report from Study
  Country: KR (occurrence: KR)
  Receive Date: 20200814
  Receipt Date: 20201120
  Transmission Date: 20210113
  Serious: Yes (Death, Life-Threatening, Hospitalization, Other)
  Sender: FDA-Public Use
  Company Number: KR-SA-2020SA209543

PATIENT

DRUGS (30)
  1. CHLORPHENIRAMINE [CHLORPHENAMINE] [Concomitant]
     Active Substance: CHLORPHENIRAMINE
     Dosage: UNK
     Route: 040
     Dates: start: 20200808, end: 20200808
  2. PALONOSETRON. [Concomitant]
     Active Substance: PALONOSETRON HYDROCHLORIDE
     Indication: PROPHYLAXIS
     Dosage: UNK
     Route: 041
     Dates: start: 20200806, end: 20200806
  3. ISATUXIMAB [Suspect]
     Active Substance: ISATUXIMAB
     Indication: ACUTE MYELOID LEUKAEMIA REFRACTORY
     Dosage: 20 MG/KG, QW,
     Route: 042
     Dates: start: 20200810, end: 20200810
  4. MIDAZOLAM. [Concomitant]
     Active Substance: MIDAZOLAM
     Indication: PROPHYLAXIS
     Dosage: UNK
     Route: 040
     Dates: start: 20200805, end: 20200805
  5. MESNA. [Concomitant]
     Active Substance: MESNA
     Dosage: UNK
     Route: 041
     Dates: start: 20200806, end: 20200809
  6. ISATUXIMAB [Suspect]
     Active Substance: ISATUXIMAB
     Dosage: 20 MG/KG, QW
     Route: 042
     Dates: start: 20200810, end: 20200810
  7. ACETAMINOPHEN. [Concomitant]
     Active Substance: ACETAMINOPHEN
     Dosage: UNK
     Route: 048
     Dates: start: 20200806, end: 20200807
  8. MAGNESIUM LACTATE;PYRIDOXINE HYDROCHLORIDE [Concomitant]
     Active Substance: MAGNESIUM LACTATE\PYRIDOXINE HYDROCHLORIDE
     Dosage: UNK
     Route: 048
     Dates: start: 20200804, end: 20200807
  9. PETHIDINE [Concomitant]
     Active Substance: MEPERIDINE
     Dosage: UNK
     Route: 040
     Dates: start: 20200809, end: 20200811
  10. NAPROXEN. [Concomitant]
     Active Substance: NAPROXEN
     Dosage: UNK
     Route: 048
     Dates: start: 20200807, end: 20200809
  11. ONDANSETRON [Concomitant]
     Active Substance: ONDANSETRON
     Dosage: UNK
     Route: 040
     Dates: start: 20200807, end: 20200807
  12. ONDANSETRON [Concomitant]
     Active Substance: ONDANSETRON
     Dosage: UNK
     Route: 040
     Dates: start: 20200809, end: 20200809
  13. ISATUXIMAB [Suspect]
     Active Substance: ISATUXIMAB
     Dosage: 20 MG/KG, QW
     Route: 042
  14. DEXAMETHASONE. [Suspect]
     Active Substance: DEXAMETHASONE
     Indication: ACUTE MYELOID LEUKAEMIA REFRACTORY
     Dosage: 10 MG/M2, ON DAYS ?3 TO ?1 (CYCLE 1 ONLY), 1, 8
     Route: 042
     Dates: start: 20200810, end: 20200810
  15. FAMOTIDINE. [Concomitant]
     Active Substance: FAMOTIDINE
     Indication: PROPHYLAXIS
     Dosage: 6 MG, 1X
     Route: 041
     Dates: start: 20200810, end: 20200811
  16. ITRACONAZOLE. [Concomitant]
     Active Substance: ITRACONAZOLE
     Indication: PROPHYLAXIS
     Dosage: UNK
     Route: 048
     Dates: start: 20200805, end: 20200810
  17. FUROSEMIDE. [Concomitant]
     Active Substance: FUROSEMIDE
     Dosage: UNK
     Route: 042
     Dates: start: 20200807, end: 20200824
  18. MONTELUKAST [Concomitant]
     Active Substance: MONTELUKAST SODIUM
     Indication: PROPHYLAXIS
     Dosage: 5 MG, 1X
     Route: 048
     Dates: start: 20200810, end: 20200810
  19. RASBURICASE [Concomitant]
     Active Substance: RASBURICASE
     Dosage: UNK
     Route: 041
     Dates: start: 20200804, end: 20200804
  20. RED BLOOD CELLS [Concomitant]
     Active Substance: HUMAN RED BLOOD CELL
     Dosage: UNK
     Route: 041
     Dates: start: 20200809, end: 20200809
  21. PETHIDINE [Concomitant]
     Active Substance: MEPERIDINE
     Indication: PROPHYLAXIS
     Dosage: UNK
     Route: 041
     Dates: start: 20200805, end: 20200805
  22. CEFOTAXIME [Concomitant]
     Active Substance: CEFOTAXIME SODIUM
     Dosage: UNK
     Route: 040
     Dates: start: 20200806, end: 20200811
  23. DEXAMETHASONE. [Suspect]
     Active Substance: DEXAMETHASONE
     Dosage: 10 MG/M2, ON DAYS ?3 TO ?1 (CYCLE 1 ONLY), 1, 8
     Route: 042
  24. CYCLOPHOSPHAMIDE. [Concomitant]
     Active Substance: CYCLOPHOSPHAMIDE
     Dosage: UNK
     Route: 041
     Dates: start: 20200806, end: 20200809
  25. SMX/TMP [Concomitant]
     Active Substance: SULFAMETHOXAZOLE\TRIMETHOPRIM
     Indication: PROPHYLAXIS
     Dosage: UNK
     Route: 048
     Dates: start: 20200808, end: 20200809
  26. PLATELETS [Concomitant]
     Active Substance: HUMAN PLATELET, ALLOGENIC
     Dosage: UNK
     Route: 041
     Dates: start: 20200805, end: 20200805
  27. PLATELETS [Concomitant]
     Active Substance: HUMAN PLATELET, ALLOGENIC
     Dosage: UNK
     Route: 041
     Dates: start: 20200808, end: 20200808
  28. ACETAMINOPHEN. [Concomitant]
     Active Substance: ACETAMINOPHEN
     Indication: PROPHYLAXIS
     Dosage: 325 MG, 1X
     Route: 048
     Dates: start: 20200810, end: 20200810
  29. CHLORPHENIRAMINE [CHLORPHENAMINE] [Concomitant]
     Active Substance: CHLORPHENIRAMINE
     Indication: PROPHYLAXIS
     Dosage: 2.4 MG, 1X,
     Route: 040
     Dates: start: 20200810, end: 20200810
  30. CHLORPHENIRAMINE [CHLORPHENAMINE] [Concomitant]
     Active Substance: CHLORPHENIRAMINE
     Dosage: UNK
     Route: 040
     Dates: start: 20200805, end: 20200805

REACTIONS (2)
  - Cytokine release syndrome [Fatal]
  - Infusion related reaction [Recovered/Resolved]

NARRATIVE: CASE EVENT DATE: 20200810
